FAERS Safety Report 9523987 (Version 2)
Quarter: 2013Q4

REPORT INFORMATION
  Report Type: Spontaneous
  Country: CA (occurrence: None)
  Receive Date: 20130912
  Receipt Date: 20131022
  Transmission Date: 20140711
  Serious: Yes (Other)
  Sender: FDA-Public Use
  Company Number: 2013-CA-000428

PATIENT
  Age: 63 Year
  Sex: Female

DRUGS (13)
  1. XYREM (SODIUM OXYBATE) ORAL SOLUTION, 500MG/ML [Suspect]
     Indication: CATAPLEXY
     Route: 048
     Dates: start: 20121214
  2. METHYLPHENIDATE SR (METHYLPHENIDATE HYDROCHLORIDE) [Concomitant]
  3. METHYLPHENIDATE (METHYLPHENIDATE HYDROCHLORIDE) [Concomitant]
  4. ESTRACE (ESTRADIOL) [Concomitant]
  5. ALENDRONATE SODIUM (ALENDRONATE SODIUM) (ALENDRONATE SODIUM) [Concomitant]
  6. ATORVASTATIN CALCIUM (ATORVASTATIN CALCIUM) [Concomitant]
  7. CLONAZEPAM (CLONAZEPAM) (CLONAZEPAM) [Concomitant]
  8. CALCIUM (CALCIUM) [Concomitant]
  9. VITAMIN D (ERGOCALCIFEROL) [Concomitant]
  10. FLOVENT (FLUTICASONE PROPIONATE) [Concomitant]
  11. NASONEX (MOMETASONE FUROATE) [Concomitant]
  12. SEREVENT (SALMETEROL XINAFOATE) [Concomitant]
  13. VENTOLIN (SALBUTAMOL SULFATE) [Concomitant]

REACTIONS (7)
  - Renal impairment [None]
  - Nephrolithiasis [None]
  - Weight decreased [None]
  - Nausea [None]
  - Renal colic [None]
  - Lithotripsy [None]
  - Pain [None]
